FAERS Safety Report 8928828 (Version 2)
Quarter: 2013Q1

REPORT INFORMATION
  Report Type: Spontaneous
  Country: US (occurrence: US)
  Receive Date: 20121128
  Receipt Date: 20130122
  Transmission Date: 20140127
  Serious: No
  Sender: FDA-Public Use
  Company Number: US-009507513-1211USA005016

PATIENT
  Age: 75 Year
  Sex: Male

DRUGS (1)
  1. PROVENTIL [Suspect]
     Indication: ASTHMA
     Dosage: TWICE A DAY
     Route: 055

REACTIONS (2)
  - Incorrect dose administered [Unknown]
  - Product quality issue [Unknown]
